APPROVED DRUG PRODUCT: DEXTENZA
Active Ingredient: DEXAMETHASONE
Strength: 0.4MG
Dosage Form/Route: INSERT;OPHTHALMIC
Application: N208742 | Product #001
Applicant: OCULAR THERAPEUTIX INC
Approved: Nov 30, 2018 | RLD: Yes | RS: Yes | Type: RX

PATENTS:
Patent 8563027 | Expires: Feb 12, 2030
Patent 12144889 | Expires: Apr 26, 2041
Patent 12150896 | Expires: Oct 7, 2036
Patent 12150896 | Expires: Oct 7, 2036
Patent 11458041 | Expires: Nov 16, 2037
Patent 11458041 | Expires: Nov 16, 2037
Patent 8409606 | Expires: May 14, 2030

EXCLUSIVITY:
Code: NPP | Date: Apr 7, 2028